FAERS Safety Report 12030388 (Version 1)
Quarter: 2016Q1

REPORT INFORMATION
  Report Type: Report from Study
  Country: US (occurrence: US)
  Receive Date: 20160207
  Receipt Date: 20160207
  Transmission Date: 20160526
  Serious: No
  Sender: FDA-Public Use
  Company Number: US-ABBVIE-15K-163-1502662-00

PATIENT
  Age: 55 Year
  Sex: Female

DRUGS (1)
  1. HUMIRA [Suspect]
     Active Substance: ADALIMUMAB
     Indication: RHEUMATOID ARTHRITIS
     Route: 058
     Dates: start: 2013

REACTIONS (6)
  - Device issue [Unknown]
  - Osteoporosis [Unknown]
  - Drug dose omission [Unknown]
  - Costochondritis [Not Recovered/Not Resolved]
  - Wrong technique in product usage process [Unknown]
  - Costochondritis [Recovered/Resolved]

NARRATIVE: CASE EVENT DATE: 2014
